FAERS Safety Report 8150330-5 (Version None)
Quarter: 2012Q1

REPORT INFORMATION
  Report Type: 
  Country: None (occurrence: None)
  Receive Date: 20120220
  Receipt Date: 20120213
  Transmission Date: 20120608
  Serious: Yes (Hospitalization)
  Sender: FDA-Public Use
  Company Number: US-BAYER-2011-062624

PATIENT
  Sex: Female
  Weight: 79.365 kg

DRUGS (8)
  1. OXYCODONE HCL [Concomitant]
  2. AUGMENTIN '125' [Concomitant]
     Dosage: UNK
  3. PAXIL [Concomitant]
     Indication: ANTIDEPRESSANT THERAPY
     Dosage: 1 DF, OM
     Dates: start: 20020101, end: 20080601
  4. NSAID'S [Concomitant]
     Dosage: UNK
     Dates: start: 20020101
  5. YAZ [Suspect]
     Indication: CONTRACEPTION
     Dosage: UNK
     Dates: start: 20060821, end: 20080601
  6. YAZ [Suspect]
     Indication: ACNE
  7. YAZ [Suspect]
     Indication: MENSTRUAL CYCLE MANAGEMENT
  8. YAZ [Suspect]
     Indication: POLYCYSTIC OVARIES

REACTIONS (5)
  - EMOTIONAL DISTRESS [None]
  - INJURY [None]
  - PULMONARY EMBOLISM [None]
  - PAIN [None]
  - ANXIETY [None]
